FAERS Safety Report 14278324 (Version 3)
Quarter: 2018Q4

REPORT INFORMATION
  Report Type: Spontaneous
  Country: US (occurrence: US)
  Receive Date: 20171211
  Receipt Date: 20181212
  Transmission Date: 20190204
  Serious: Yes (Hospitalization, Other)
  Sender: FDA-Public Use
  Company Number: US-OTSUKA-2016_030341

PATIENT
  Age: 69 Year
  Sex: Male
  Weight: 79.5 kg

DRUGS (4)
  1. ABILIFY [Suspect]
     Active Substance: ARIPIPRAZOLE
     Indication: MAJOR DEPRESSION
     Dosage: 1 MG, QD
     Route: 065
     Dates: start: 201209
  2. ABILIFY [Suspect]
     Active Substance: ARIPIPRAZOLE
     Indication: AFFECTIVE DISORDER
     Dosage: 2 MG, QD
     Route: 065
  3. ABILIFY [Suspect]
     Active Substance: ARIPIPRAZOLE
     Indication: ADJUVANT THERAPY
     Dosage: 5 MG, QD
     Route: 065
     Dates: end: 201502
  4. ABILIFY [Suspect]
     Active Substance: ARIPIPRAZOLE
     Dosage: UNK
     Route: 065

REACTIONS (19)
  - Gambling disorder [Recovered/Resolved]
  - Impulse-control disorder [Not Recovered/Not Resolved]
  - Compulsive shopping [Not Recovered/Not Resolved]
  - Weight increased [Not Recovered/Not Resolved]
  - Mental disorder [Unknown]
  - Injury [Unknown]
  - Lymphocyte percentage decreased [Unknown]
  - Product use in unapproved indication [Unknown]
  - Economic problem [Unknown]
  - Suicide attempt [Not Recovered/Not Resolved]
  - Neutrophil percentage increased [Unknown]
  - Neuropsychiatric symptoms [Unknown]
  - Obsessive-compulsive disorder [Not Recovered/Not Resolved]
  - Suicidal ideation [Not Recovered/Not Resolved]
  - Blood magnesium decreased [Unknown]
  - Compulsive hoarding [Not Recovered/Not Resolved]
  - Emotional distress [Unknown]
  - Impulsive behaviour [Not Recovered/Not Resolved]
  - Eating disorder [Not Recovered/Not Resolved]

NARRATIVE: CASE EVENT DATE: 201209
